FAERS Safety Report 17762976 (Version 2)
Quarter: 2020Q2

REPORT INFORMATION
  Report Type: Spontaneous
  Country: DE (occurrence: RU)
  Receive Date: 20200508
  Receipt Date: 20200512
  Transmission Date: 20200714
  Serious: Yes (Other)
  Sender: FDA-Public Use
  Company Number: RU-ELI_LILLY_AND_COMPANY-RU202005001775

PATIENT
  Age: 57 Year
  Sex: Female

DRUGS (3)
  1. ERBITUX [Suspect]
     Active Substance: CETUXIMAB
     Indication: MALIGNANT PALATE NEOPLASM
     Dosage: 400 MG/M2, UNK
     Route: 042
     Dates: start: 20161019
  2. METHOTREXATE. [Concomitant]
     Active Substance: METHOTREXATE
     Indication: MALIGNANT PALATE NEOPLASM
     Dosage: UNK, UNKNOWN
  3. ERBITUX [Suspect]
     Active Substance: CETUXIMAB
     Dosage: 250 MG/M2, WEEKLY (1/W)
     Route: 042

REACTIONS (2)
  - Off label use [Unknown]
  - Respiratory tract infection viral [Unknown]
